FAERS Safety Report 8924533 (Version 1)
Quarter: 2012Q4

REPORT INFORMATION
  Report Type: Report from Study
  Country: CZ (occurrence: CZ)
  Receive Date: 20121126
  Receipt Date: 20121126
  Transmission Date: 20130627
  Serious: Yes (Hospitalization)
  Sender: FDA-Public Use
  Company Number: CZ-ASTRAZENECA-2012SE84194

PATIENT
  Age: 25201 Day
  Sex: Male

DRUGS (8)
  1. MEROPENEM [Suspect]
     Indication: ABDOMINAL INFECTION
     Route: 042
     Dates: start: 20121024, end: 20121101
  2. AMLODIPINE [Concomitant]
     Route: 048
     Dates: end: 20121024
  3. AMLODIPINE [Concomitant]
     Route: 048
     Dates: start: 20121101
  4. FRAXIPARIN [Concomitant]
     Indication: PROPHYLAXIS
     Route: 058
     Dates: start: 20121025, end: 20121106
  5. IMAZOL CREAM [Concomitant]
     Route: 003
  6. SOL. CASTELLANI [Concomitant]
     Route: 003
  7. TAMSULOSIN [Concomitant]
     Route: 048
     Dates: end: 20121024
  8. TAMSULOSIN [Concomitant]
     Route: 048
     Dates: start: 20121101

REACTIONS (1)
  - Drug eruption [Recovered/Resolved]
